FAERS Safety Report 13594368 (Version 1)
Quarter: 2017Q2

REPORT INFORMATION
  Report Type: Report from Study
  Country: US (occurrence: US)
  Receive Date: 20170530
  Receipt Date: 20170530
  Transmission Date: 20170830
  Serious: Yes (Hospitalization, Other)
  Sender: FDA-Public Use
  Company Number: US-GILEAD-2017-0274332

PATIENT
  Age: 41 Year
  Sex: Female

DRUGS (1)
  1. ELVITEGRAVIR/COBICISTAT/EMTRICITABINE/TENOFOVIR ALAFENAMIDE [Suspect]
     Active Substance: COBICISTAT\ELVITEGRAVIR\EMTRICITABINE\TENOFOVIR
     Indication: HIV INFECTION
     Dosage: 510 MG, UNK
     Route: 048
     Dates: start: 20160901, end: 20170515

REACTIONS (5)
  - Hyperpituitarism [Unknown]
  - Oedema [Unknown]
  - Drug dose omission [Recovered/Resolved]
  - Drug interaction [Unknown]
  - Palpitations [Unknown]
